FAERS Safety Report 6306233-1 (Version None)
Quarter: 2009Q3

REPORT INFORMATION
  Report Type: 
  Country: None (occurrence: None)
  Receive Date: 20090812
  Receipt Date: 20090803
  Transmission Date: 20100115
  Serious: Yes (Hospitalization)
  Sender: FDA-Public Use
  Company Number: FR-NOVOPROD-288964

PATIENT
  Age: 64 Year
  Sex: Male

DRUGS (6)
  1. NOVOMIX 30 FLEXPEN [Suspect]
     Indication: TYPE 2 DIABETES MELLITUS
     Dosage: UNKNOWN
     Dates: start: 20081101
  2. NOVOMIX 30 FLEXPEN [Suspect]
     Dates: start: 20090306, end: 20090318
  3. STAGID [Concomitant]
  4. APROVEL [Concomitant]
  5. ASPEGIC 325 [Concomitant]
  6. FRACTAL                            /01224501/ [Concomitant]

REACTIONS (6)
  - ARRHYTHMIA [None]
  - BURNING SENSATION [None]
  - DEPRESSED LEVEL OF CONSCIOUSNESS [None]
  - MALAISE [None]
  - NAUSEA [None]
  - VOMITING [None]
